FAERS Safety Report 21562417 (Version 2)
Quarter: 2022Q4

REPORT INFORMATION
  Report Type: Spontaneous
  Country: US (occurrence: US)
  Receive Date: 20221107
  Receipt Date: 20221213
  Transmission Date: 20230112
  Serious: No
  Sender: FDA-Public Use
  Company Number: US-LEO Pharma-346636

PATIENT
  Sex: Female

DRUGS (1)
  1. ADBRY [Suspect]
     Active Substance: TRALOKINUMAB-LDRM
     Indication: Dermatitis
     Route: 058
     Dates: start: 20221028

REACTIONS (4)
  - Injection site rash [Unknown]
  - Pain in extremity [Unknown]
  - Skin discolouration [Unknown]
  - Inflammation [Unknown]
